FAERS Safety Report 8942234 (Version 1)
Quarter: 2012Q4

REPORT INFORMATION
  Report Type: Spontaneous
  Country: US (occurrence: None)
  Receive Date: 20121129
  Receipt Date: 20121129
  Transmission Date: 20130627
  Serious: Yes (Other)
  Sender: FDA-Public Use
  Company Number: None

PATIENT
  Sex: Female

DRUGS (1)
  1. LAMICTAL [Suspect]
     Indication: GENERALIZED CONVULSIVE EPILEPSY, WITH INTRACTABLE EPILEPSY
     Dosage: 200mg 1.5QAM, 2QMidday, 2QPM Oral
     Route: 048

REACTIONS (3)
  - Treatment failure [None]
  - No therapeutic response [None]
  - Product substitution issue [None]
